FAERS Safety Report 5495196-7 (Version None)
Quarter: 2007Q4

REPORT INFORMATION
  Report Type: 
  Country: None (occurrence: None)
  Receive Date: 20071024
  Receipt Date: 20070713
  Transmission Date: 20080405
  Serious: No
  Sender: FDA-Public Use
  Company Number: US-AMGEN-US234189

PATIENT
  Sex: Female
  Weight: 63.6 kg

DRUGS (1)
  1. VECTIBIX [Suspect]
     Indication: DRUG USE FOR UNKNOWN INDICATION
     Route: 042
     Dates: start: 20070521, end: 20070702

REACTIONS (2)
  - RASH VESICULAR [None]
  - SCAB [None]
